FAERS Safety Report 9127544 (Version 1)
Quarter: 2013Q1

REPORT INFORMATION
  Report Type: Spontaneous
  Country: US (occurrence: US)
  Receive Date: 20130228
  Receipt Date: 20130228
  Transmission Date: 20140127
  Serious: No
  Sender: FDA-Public Use
  Company Number: US-GLAXOSMITHKLINE-A0983060A

PATIENT
  Age: 59 Year
  Sex: Female
  Weight: 72.7 kg

DRUGS (7)
  1. LAMICTAL [Suspect]
     Indication: PRODUCT USED FOR UNKNOWN INDICATION
  2. PRISTIQ [Concomitant]
     Indication: DEPRESSION
     Dosage: 100MG PER DAY
     Route: 048
     Dates: end: 201205
  3. SIMVASTATIN [Concomitant]
     Indication: BLOOD CHOLESTEROL
     Dosage: 20MG PER DAY
  4. TOPAMAX [Concomitant]
     Indication: MIGRAINE
  5. AMBIEN [Concomitant]
     Indication: SLEEP DISORDER
     Dosage: 12.5MG PER DAY
  6. KLONOPIN [Concomitant]
     Indication: SLEEP DISORDER
  7. UNSPECIFIED MEDICATIONS [Concomitant]
     Indication: PRODUCT USED FOR UNKNOWN INDICATION

REACTIONS (1)
  - Headache [Unknown]
